FAERS Safety Report 8055866-3 (Version None)
Quarter: 2012Q1

REPORT INFORMATION
  Report Type: 
  Country: None (occurrence: None)
  Receive Date: 20120119
  Receipt Date: 20120119
  Transmission Date: 20120608
  Serious: Yes (Life-Threatening, Hospitalization)
  Sender: FDA-Public Use
  Company Number: None

PATIENT
  Age: 29 Year
  Sex: Female
  Weight: 51.255 kg

DRUGS (1)
  1. CAMRESE BIRTH CONTROL [Suspect]
     Indication: MIGRAINE PROPHYLAXIS
     Route: 048

REACTIONS (6)
  - ANXIETY [None]
  - PRODUCT SUBSTITUTION ISSUE [None]
  - KIDNEY INFECTION [None]
  - SUICIDAL IDEATION [None]
  - URINARY TRACT INFECTION [None]
  - INSOMNIA [None]
